FAERS Safety Report 4748123-1 (Version None)
Quarter: 2005Q3

REPORT INFORMATION
  Report Type: 
  Country: None (occurrence: None)
  Receive Date: 20050816
  Receipt Date: 20050803
  Transmission Date: 20060218
  Serious: Yes (Death, Hospitalization, Other)
  Sender: FDA-Public Use
  Company Number: 2004117310

PATIENT
  Age: 37 Year
  Sex: Female
  Weight: 65.7716 kg

DRUGS (17)
  1. NEURONTIN [Suspect]
     Indication: BIPOLAR DISORDER
     Dosage: SEE IMAGE
     Dates: start: 19951201
  2. NEURONTIN [Suspect]
     Indication: BIPOLAR DISORDER
     Dosage: SEE IMAGE
     Dates: start: 20021016
  3. IBUPROFEN [Suspect]
     Dosage: (800 MG 3 IN 1D) ORAL
     Route: 048
     Dates: start: 19951201
  4. AMITRIPTYLINE HYDROCHLORIDE [Suspect]
     Dosage: 100 MG 1 IN 1D ORAL
     Route: 048
  5. NORTRIPTYLINE HCL [Suspect]
  6. VENLAFAXINE HCL [Suspect]
     Dosage: 225 MG (75 MG 3 IN 1 D) ORAL
     Route: 048
  7. OXYCODONE HCL [Suspect]
     Dosage: 80 MG
  8. BISOPROLOL FUMARATE/HYDROCHLOROTHIAZIDE (BISOPROLOL FUMARATE/ HYDROCHL [Concomitant]
  9. BUSPIRONE HCL [Concomitant]
  10. VERAPAMIL [Concomitant]
  11. ALBUTEROL [Concomitant]
  12. SUMATRIPTAN (SUMATRIPTAN) [Concomitant]
  13. TEMAZEPAM [Concomitant]
  14. LIDOCAINE HCL INJ [Concomitant]
  15. OXAZEPAM [Concomitant]
  16. BENZODIAZEPINE DERIVATIVES (BENZODIAZEPINE DERIVATIVES) [Concomitant]
  17. OPIOIDS (OPIODS) [Concomitant]

REACTIONS (16)
  - CARDIAC ARREST [None]
  - COMPLETED SUICIDE [None]
  - CONFUSIONAL STATE [None]
  - CONTUSION [None]
  - DRUG DEPENDENCE [None]
  - DRUG INEFFECTIVE [None]
  - DRUG SCREEN POSITIVE [None]
  - HOMICIDAL IDEATION [None]
  - INTENTIONAL MISUSE [None]
  - LIVIDITY [None]
  - LOSS OF CONSCIOUSNESS [None]
  - MULTIPLE DRUG OVERDOSE ACCIDENTAL [None]
  - REFUSAL OF TREATMENT BY PATIENT [None]
  - SKIN DISCOLOURATION [None]
  - SKIN LACERATION [None]
  - SUICIDAL IDEATION [None]
